FAERS Safety Report 8489209-8 (Version None)
Quarter: 2012Q3

REPORT INFORMATION
  Report Type: 
  Country: None (occurrence: None)
  Receive Date: 20120705
  Receipt Date: 20120629
  Transmission Date: 20120928
  Serious: Yes (Other)
  Sender: FDA-Public Use
  Company Number: BR-PFIZER INC-2012098313

PATIENT
  Age: 31 Year
  Sex: Female
  Weight: 66 kg

DRUGS (9)
  1. DEPURAN [Concomitant]
     Dosage: UNK
  2. DIPYRONE TAB [Concomitant]
     Dosage: UNK
  3. TRAMADOL HYDROCHLORIDE [Concomitant]
     Dosage: UNK
  4. CEPHALEXIN [Concomitant]
     Dosage: UNK
  5. NIMESULIDE [Concomitant]
     Dosage: UNK
  6. OMEPRAZOLE [Concomitant]
     Dosage: UNK
  7. LYRICA [Suspect]
     Indication: RADICULOPATHY
     Dosage: 150 MG, DAILY
     Route: 048
  8. ASPIRIN [Concomitant]
     Dosage: UNK
  9. THIAMINE HYDROCHLORIDE [Concomitant]
     Dosage: UNK

REACTIONS (1)
  - ARTHROPATHY [None]
